FAERS Safety Report 20881007 (Version 1)
Quarter: 2022Q2

REPORT INFORMATION
  Report Type: Spontaneous
  Country: US (occurrence: US)
  Receive Date: 20220526
  Receipt Date: 20220526
  Transmission Date: 20220721
  Serious: No
  Sender: FDA-Public Use
  Company Number: US-RADIUS HEALTH INC.-2022US001381

PATIENT
  Sex: Female

DRUGS (1)
  1. TYMLOS [Suspect]
     Active Substance: ABALOPARATIDE
     Indication: Osteoporosis
     Dosage: 80 MICROGRAM, QD
     Route: 058
     Dates: start: 202203, end: 20220402

REACTIONS (14)
  - Condition aggravated [Recovering/Resolving]
  - Vision blurred [Unknown]
  - Spinal pain [Recovering/Resolving]
  - Coccydynia [Recovering/Resolving]
  - Peripheral swelling [Recovering/Resolving]
  - Decreased appetite [Recovering/Resolving]
  - Groin pain [Recovering/Resolving]
  - Gait disturbance [Recovering/Resolving]
  - Walking aid user [Not Recovered/Not Resolved]
  - Joint swelling [Recovering/Resolving]
  - Pain in jaw [Recovering/Resolving]
  - Arthralgia [Recovering/Resolving]
  - Pain [Not Recovered/Not Resolved]
  - Back pain [Recovering/Resolving]
